FAERS Safety Report 5634537-4 (Version None)
Quarter: 2008Q1

REPORT INFORMATION
  Report Type: 
  Country: None (occurrence: None)
  Receive Date: 20080222
  Receipt Date: 20080214
  Transmission Date: 20080703
  Serious: Yes (Life-Threatening, Disabling)
  Sender: FDA-Public Use
  Company Number: PHFR2008GB00886

PATIENT
  Age: 63 Year
  Sex: Female
  Weight: 68.45 kg

DRUGS (3)
  1. TAMOXIFEN [Concomitant]
     Indication: BREAST CANCER
     Route: 048
     Dates: start: 20020601, end: 20071001
  2. EZETIMIBE [Concomitant]
     Dosage: 10 MG, QD
     Route: 065
     Dates: start: 20080101
  3. LETROZOLE [Suspect]
     Indication: BREAST CANCER
     Dosage: 2.5 MG, UNK
     Route: 048
     Dates: start: 20071012, end: 20080104

REACTIONS (7)
  - AGGRESSION [None]
  - CRYING [None]
  - DYSPEPSIA [None]
  - HYPERTENSION [None]
  - IRRITABILITY [None]
  - MOOD SWINGS [None]
  - NERVOUSNESS [None]
